FAERS Safety Report 4498302-6 (Version None)
Quarter: 2004Q4

REPORT INFORMATION
  Report Type: 
  Country: None (occurrence: None)
  Receive Date: 20041109
  Receipt Date: 20041109
  Transmission Date: 20050328
  Serious: Yes (Death, Hospitalization)
  Sender: FDA-Public Use
  Company Number: None

PATIENT
  Age: 47 Year
  Sex: Male
  Weight: 97.0698 kg

DRUGS (5)
  1. IRINOTECAN  100MG/40MG  PHARMACIA/PFIZER [Suspect]
     Indication: NON-SMALL CELL LUNG CANCER
     Dosage: 100MG/M2   D1 + 8  INTRAVENOUS
     Route: 042
     Dates: start: 20040308, end: 20040624
  2. CAPECITABINE   150MG/500MG  ROCHE [Suspect]
     Indication: NON-SMALL CELL LUNG CANCER
     Dosage: 1500MG/M2   D2-D15  ORAL
     Route: 048
     Dates: start: 20040309, end: 20040702
  3. CALAN [Concomitant]
  4. LIPITOR [Concomitant]
  5. SINGULAIR [Concomitant]

REACTIONS (12)
  - DYSPNOEA [None]
  - EPISTAXIS [None]
  - HAEMATURIA [None]
  - HAEMOPTYSIS [None]
  - LUNG INFECTION [None]
  - OXYGEN SATURATION DECREASED [None]
  - PNEUMOCYSTIS CARINII PNEUMONIA [None]
  - PNEUMONIA [None]
  - PRODUCTIVE COUGH [None]
  - PYREXIA [None]
  - RESPIRATORY FAILURE [None]
  - SPUTUM DISCOLOURED [None]
